FAERS Safety Report 8771304 (Version 2)
Quarter: 2013Q1

REPORT INFORMATION
  Report Type: Spontaneous
  Country: BR (occurrence: BR)
  Receive Date: 20120906
  Receipt Date: 20130326
  Transmission Date: 20140127
  Serious: No
  Sender: FDA-Public Use
  Company Number: PHHY2012BR076592

PATIENT
  Sex: Male

DRUGS (4)
  1. DIOVAN [Suspect]
     Indication: HYPERTENSION
     Dosage: 320 MG, QD (IN THE MORNING)
  2. CALCIUM [Suspect]
     Dosage: UNK UKN, UNK
  3. MINIPRESS [Suspect]
     Indication: HYPERTENSION
     Dosage: 1 DF, DAILY
  4. VITAMINS [Suspect]
     Dosage: UNK UKN, UNK

REACTIONS (2)
  - Erysipelas [Recovered/Resolved]
  - Local swelling [Recovered/Resolved]
